FAERS Safety Report 10090149 (Version 1)
Quarter: 2014Q2

REPORT INFORMATION
  Report Type: Spontaneous
  Country: US (occurrence: None)
  Receive Date: 20140410
  Receipt Date: 20140410
  Transmission Date: 20141212
  Serious: Yes (Other)
  Sender: FDA-Public Use
  Company Number: 1216326

PATIENT
  Age: 35 Year
  Sex: Male

DRUGS (1)
  1. ROCEPHIN [Suspect]
     Indication: PHARYNGITIS
     Dates: start: 20130418, end: 20130418

REACTIONS (1)
  - Anaphylactic reaction [None]
